FAERS Safety Report 9370629 (Version 2)
Quarter: 2013Q3

REPORT INFORMATION
  Report Type: Spontaneous
  Country: US (occurrence: US)
  Receive Date: 20130626
  Receipt Date: 20130710
  Transmission Date: 20140515
  Serious: Yes (Hospitalization)
  Sender: FDA-Public Use
  Company Number: US-BAXTER-2013BAX023747

PATIENT
  Age: 63 Year
  Sex: Female

DRUGS (2)
  1. DIANEAL LOW CALCIUM [Suspect]
     Indication: PERITONEAL DIALYSIS
     Route: 033
     Dates: start: 20111223, end: 201305
  2. DIANEAL LOW CALCIUM [Suspect]
     Route: 033
     Dates: start: 201306

REACTIONS (2)
  - Thrombosis [Recovered/Resolved]
  - Rectocele [Recovered/Resolved]
